FAERS Safety Report 5341564-3 (Version None)
Quarter: 2007Q2

REPORT INFORMATION
  Report Type: 
  Country: None (occurrence: None)
  Receive Date: 20070601
  Receipt Date: 20070521
  Transmission Date: 20071010
  Serious: Yes (Other)
  Sender: FDA-Public Use
  Company Number: DE-JNJFOC-20070505018

PATIENT
  Sex: Female

DRUGS (25)
  1. LEVOFLOXACIN [Suspect]
     Indication: DRUG USE FOR UNKNOWN INDICATION
     Route: 065
  2. CYCLOSPORINE [Suspect]
     Route: 048
  3. CYCLOSPORINE [Suspect]
     Route: 048
  4. CYCLOSPORINE [Suspect]
     Indication: DRUG USE FOR UNKNOWN INDICATION
     Route: 048
  5. CYCLOSPORINE [Suspect]
     Route: 042
  6. CERTICAN [Suspect]
     Indication: DRUG USE FOR UNKNOWN INDICATION
     Route: 065
  7. BASILIXIMAB [Suspect]
     Indication: DRUG USE FOR UNKNOWN INDICATION
     Route: 042
  8. BASILIXIMAB [Suspect]
     Route: 065
  9. AMPICILLIN [Suspect]
     Indication: DRUG USE FOR UNKNOWN INDICATION
     Route: 065
  10. SULBACTAM [Suspect]
     Indication: DRUG USE FOR UNKNOWN INDICATION
     Route: 065
  11. TRIMETHOPRIM [Concomitant]
     Route: 065
  12. SULFAMETHOXAZOLE [Concomitant]
     Route: 065
  13. AMPHOTERICIN B [Concomitant]
     Route: 065
  14. VALPORIC ACID [Concomitant]
     Route: 065
  15. RAMIPRIL [Concomitant]
     Route: 065
  16. RANITIDINE [Concomitant]
     Route: 065
  17. AMLODIPINE [Concomitant]
     Route: 065
  18. MAGNESIUM SULFATE [Concomitant]
     Route: 065
  19. CALCIUM CHLORIDE [Concomitant]
     Route: 065
  20. COLECALCIFEROL [Concomitant]
     Route: 065
  21. FERROUS SULFATE TAB [Concomitant]
     Route: 065
  22. VITAMIN CAP [Concomitant]
     Route: 065
  23. PARACETAMOL [Concomitant]
     Route: 065
  24. METHYLPRENISOLONE [Concomitant]
     Route: 042
  25. PREDNISOLONE [Concomitant]
     Route: 048

REACTIONS (7)
  - BODY TEMPERATURE INCREASED [None]
  - GRAFT DYSFUNCTION [None]
  - GRAND MAL CONVULSION [None]
  - HYPERCHOLESTEROLAEMIA [None]
  - LIVER FUNCTION TEST ABNORMAL [None]
  - PERICARDIAL EFFUSION [None]
  - RENAL FAILURE CHRONIC [None]
